FAERS Safety Report 20159813 (Version 2)
Quarter: 2021Q4

REPORT INFORMATION
  Report Type: Report from Study
  Country: RU (occurrence: None)
  Receive Date: 20211208
  Receipt Date: 20211220
  Transmission Date: 20220304
  Serious: Yes (Death, Hospitalization)
  Sender: FDA-Public Use
  Company Number: RU-ROCHE-2969958

PATIENT
  Age: 65 Year
  Sex: Male
  Weight: 89 kg

DRUGS (9)
  1. ATEZOLIZUMAB [Suspect]
     Active Substance: ATEZOLIZUMAB
     Indication: Hepatocellular carcinoma
     Dosage: ON 17/NOV/2021, RECEIVED THE MOST RECENT DOSE OF ATEZOLIZUMAB (1200 MG) PRIOR TO AE AND SAE.
     Route: 041
     Dates: start: 20210217
  2. BEVACIZUMAB [Suspect]
     Active Substance: BEVACIZUMAB
     Indication: Hepatocellular carcinoma
     Dosage: 15 MG/KG (PER PROTOCOL) ?ON 17/NOV/2021, RECEIVED THE MOST RECENT DOSE OF BEVACIZUMAB (1245 MG) PRIO
     Route: 042
     Dates: start: 20210217
  3. INSULINUM ISOPHANUM [Concomitant]
     Indication: Diabetes mellitus
     Dates: start: 2016
  4. PERINDOPRIL ARGININE [Concomitant]
     Active Substance: PERINDOPRIL ARGININE
     Indication: Hypertension
     Dates: start: 2010
  5. ATORVASTATIN [Concomitant]
     Active Substance: ATORVASTATIN
     Indication: Hypertension
     Dates: start: 2010
  6. AMLODIPINE [Concomitant]
     Active Substance: AMLODIPINE BESYLATE
     Indication: Hypertension
     Dosage: YES
     Dates: start: 201012
  7. BISOPROLOL FUMARATE\PERINDOPRIL ARGININE [Concomitant]
     Active Substance: BISOPROLOL FUMARATE\PERINDOPRIL ARGININE
     Indication: Hypertension
     Dates: start: 20210320
  8. ARIFAM [AMLODIPINE;INDAPAMIDE] [Concomitant]
     Indication: Hypertension
     Dates: start: 20210320
  9. XARELTO [Concomitant]
     Active Substance: RIVAROXABAN
     Indication: Portal vein thrombosis
     Dates: start: 20210804

REACTIONS (1)
  - Ischaemic stroke [Fatal]

NARRATIVE: CASE EVENT DATE: 20211120
